FAERS Safety Report 8995962 (Version 1)
Quarter: 2013Q1

REPORT INFORMATION
  Report Type: Spontaneous
  Country: US (occurrence: US)
  Receive Date: 20130103
  Receipt Date: 20130103
  Transmission Date: 20140127
  Serious: No
  Sender: FDA-Public Use
  Company Number: US-ABBOTT-12P-163-0938420-00

PATIENT
  Age: 46 Year
  Sex: Female

DRUGS (3)
  1. SYNTHROID [Suspect]
     Indication: RADIOTHERAPY TO THYROID
     Dates: start: 1992
  2. IRON [Concomitant]
     Indication: ANAEMIA
  3. IRON [Concomitant]
     Indication: MINERAL SUPPLEMENTATION

REACTIONS (1)
  - Anaemia [Recovered/Resolved]
